FAERS Safety Report 7081602-3 (Version None)
Quarter: 2010Q4

REPORT INFORMATION
  Report Type: 
  Country: None (occurrence: None)
  Receive Date: 20101025
  Receipt Date: 20101013
  Transmission Date: 20110411
  Serious: Yes (Life-Threatening, Hospitalization)
  Sender: FDA-Public Use
  Company Number: 2010MA003687

PATIENT
  Age: 63 Year
  Sex: Female

DRUGS (8)
  1. TRAMADOL HYDROCHLORIDE [Suspect]
     Indication: PAIN IN EXTREMITY
     Dosage: 50 MG;QID;PO
     Route: 048
     Dates: start: 20101005, end: 20101006
  2. CARBAMAZEPINE [Concomitant]
  3. SPIRONOLACTONE [Concomitant]
  4. OMEPRAZOLE [Concomitant]
  5. FOLIC ACID [Concomitant]
  6. LACTULOSE [Concomitant]
  7. IBUPROFEN [Concomitant]
  8. PREV MEDS [Concomitant]

REACTIONS (1)
  - STATUS EPILEPTICUS [None]
